FAERS Safety Report 25100095 (Version 1)
Quarter: 2025Q1

REPORT INFORMATION
  Report Type: Spontaneous
  Country: GB (occurrence: GB)
  Receive Date: 20250320
  Receipt Date: 20250320
  Transmission Date: 20250409
  Serious: Yes (Life-Threatening, Hospitalization, Other)
  Sender: TEVA
  Company Number: None

PATIENT
  Age: 55 Year
  Sex: Male
  Weight: 90 kg

DRUGS (9)
  1. FEXOFENADINE [Suspect]
     Active Substance: FEXOFENADINE HYDROCHLORIDE
     Indication: Nasal congestion
     Route: 065
     Dates: start: 20241001, end: 20250312
  2. COLCHICINE [Concomitant]
     Active Substance: COLCHICINE
     Indication: Gout
  3. WEGOVY [Concomitant]
     Active Substance: SEMAGLUTIDE
     Indication: Weight decreased
     Route: 065
     Dates: start: 20241217, end: 20250311
  4. SERETIDE [Concomitant]
     Active Substance: FLUTICASONE PROPIONATE\SALMETEROL XINAFOATE
     Indication: Asthma
     Dates: start: 20240301
  5. FLUTICASONE [Suspect]
     Active Substance: FLUTICASONE
     Indication: Nasal congestion
     Route: 045
     Dates: start: 20241001, end: 20250312
  6. OMEPRAZOLE [Concomitant]
     Active Substance: OMEPRAZOLE
     Indication: Product used for unknown indication
  7. DEPAKOTE [Concomitant]
     Active Substance: DIVALPROEX SODIUM
     Indication: Bipolar disorder
  8. ALBUTEROL [Concomitant]
     Active Substance: ALBUTEROL
     Indication: Asthma
  9. DIAZEPAM [Concomitant]
     Active Substance: DIAZEPAM
     Indication: Anxiety

REACTIONS (4)
  - Anxiety [Recovering/Resolving]
  - Depression [Recovering/Resolving]
  - Psychotic disorder [Recovering/Resolving]
  - Suicidal ideation [Recovering/Resolving]

NARRATIVE: CASE EVENT DATE: 20250101
